FAERS Safety Report 14549410 (Version 1)
Quarter: 2018Q1

REPORT INFORMATION
  Report Type: Spontaneous
  Country: NL (occurrence: NL)
  Receive Date: 20180219
  Receipt Date: 20180219
  Transmission Date: 20180509
  Serious: No
  Sender: FDA-Public Use
  Company Number: NL-ALKEM LABORATORIES LIMITED-NL-ALKEM-2017-01785

PATIENT
  Sex: Female

DRUGS (3)
  1. QUETIAPINE FUMARATE. [Suspect]
     Active Substance: QUETIAPINE FUMARATE
     Dosage: UNK
     Route: 065
  2. QUETIAPINE FUMARATE. [Suspect]
     Active Substance: QUETIAPINE FUMARATE
     Indication: HALLUCINATION, VISUAL
     Dosage: 50 MG, QD (MAXIMAL DOSE)
     Route: 065
  3. OLANZAPINE. [Suspect]
     Active Substance: OLANZAPINE
     Indication: HALLUCINATION, VISUAL
     Dosage: UNK
     Route: 065

REACTIONS (2)
  - Weight increased [Unknown]
  - Fatigue [Unknown]
